FAERS Safety Report 16430598 (Version 1)
Quarter: 2019Q2

REPORT INFORMATION
  Report Type: Spontaneous
  Country: US (occurrence: US)
  Receive Date: 20190614
  Receipt Date: 20190614
  Transmission Date: 20190711
  Serious: Yes (Other)
  Sender: FDA-Public Use
  Company Number: US-APOTEX-2019AP016676

PATIENT
  Age: 62 Year
  Sex: Female

DRUGS (6)
  1. METOPROLOL. [Suspect]
     Active Substance: METOPROLOL
     Indication: SINUS TACHYCARDIA
  2. DILTIAZEM. [Suspect]
     Active Substance: DILTIAZEM
     Indication: HYPERTROPHIC CARDIOMYOPATHY
  3. METOPROLOL. [Suspect]
     Active Substance: METOPROLOL
     Indication: HYPERTROPHIC CARDIOMYOPATHY
  4. DILTIAZEM. [Suspect]
     Active Substance: DILTIAZEM
     Indication: ANGINA PECTORIS
     Dosage: UNK
     Route: 065
  5. DILTIAZEM. [Suspect]
     Active Substance: DILTIAZEM
     Indication: SINUS TACHYCARDIA
  6. METOPROLOL. [Suspect]
     Active Substance: METOPROLOL
     Indication: ANGINA PECTORIS
     Dosage: UNK
     Route: 065

REACTIONS (1)
  - Hypotension [Recovering/Resolving]
